FAERS Safety Report 11371732 (Version 1)
Quarter: 2015Q3

REPORT INFORMATION
  Report Type: Other
  Country: CA (occurrence: CA)
  Receive Date: 20150812
  Receipt Date: 20150812
  Transmission Date: 20151125
  Serious: Yes (Hospitalization)
  Sender: FDA-Public Use
  Company Number: CA-APOTEX-2015AP011135

PATIENT
  Age: 20 Year
  Sex: Male
  Weight: 74.83 kg

DRUGS (1)
  1. APO-MODAFINIL [Suspect]
     Active Substance: MODAFINIL
     Indication: NARCOLEPSY
     Dosage: 1 DF, BID
     Route: 048

REACTIONS (2)
  - Erythema [Unknown]
  - Pruritus [Unknown]
